FAERS Safety Report 13078749 (Version 1)
Quarter: 2017Q1

REPORT INFORMATION
  Report Type: Spontaneous
  Country: AU (occurrence: AU)
  Receive Date: 20170102
  Receipt Date: 20170102
  Transmission Date: 20170428
  Serious: Yes (Other)
  Sender: FDA-Public Use
  Company Number: AU-APOTEX-2016AP016122

PATIENT
  Age: 55 Year
  Sex: Female

DRUGS (1)
  1. APO-AMOXYCILLIN + CLAVULANIC ACID [Suspect]
     Active Substance: AMOXICILLIN\CLAVULANIC ACID
     Indication: LOWER RESPIRATORY TRACT INFECTION
     Dosage: 2 DF, (875MG /125MG 2 TABLETS PER DAY)
     Route: 065

REACTIONS (10)
  - Dizziness [Recovering/Resolving]
  - Crying [Recovering/Resolving]
  - Polyuria [Recovering/Resolving]
  - Malaise [Recovering/Resolving]
  - Vomiting [Recovering/Resolving]
  - Headache [Recovering/Resolving]
  - Apparent death [Recovering/Resolving]
  - Dyspnoea [Recovering/Resolving]
  - Abdominal discomfort [Recovering/Resolving]
  - Tremor [Recovering/Resolving]
